FAERS Safety Report 8658431 (Version 2)
Quarter: 2012Q4

REPORT INFORMATION
  Report Type: 
  Country: US (occurrence: US)
  Receive Date: 20120710
  Receipt Date: 20121220
  Transmission Date: 20130627
  Serious: No
  Sender: FDA-Public Use
  Company Number: US-ASTRAZENECA-2012SE43795

PATIENT
  Age: 58 Year
  Sex: Female

DRUGS (1)
  1. SEROQUEL [Suspect]
     Route: 048

REACTIONS (5)
  - Blood pressure abnormal [Unknown]
  - Thyroid disorder [Unknown]
  - Bronchitis [Unknown]
  - Malaise [Unknown]
  - Oropharyngeal pain [Unknown]
